FAERS Safety Report 9783116 (Version 2)
Quarter: 2013Q4

REPORT INFORMATION
  Report Type: Spontaneous
  Country: GB (occurrence: GB)
  Receive Date: 20131226
  Receipt Date: 20131226
  Transmission Date: 20140711
  Serious: Yes (Congenital Anomaly, Other)
  Sender: FDA-Public Use
  Company Number: GB-PFIZER INC-2013068890

PATIENT
  Sex: Male

DRUGS (5)
  1. LYRICA [Suspect]
     Indication: PELVIC PAIN
     Dosage: 75 MG, 4X/DAY
     Route: 064
  2. DIAZEPAM [Concomitant]
     Dosage: 5 MG, 2X/DAY
     Route: 064
  3. REMEDEINE [Concomitant]
     Dosage: MAX 8 PER DAY
     Route: 064
  4. SERTRALINE [Concomitant]
     Dosage: 50 MG, DAILY
     Route: 064
  5. SUBUTEX [Concomitant]
     Dosage: 2 MG, DAILY
     Route: 064

REACTIONS (4)
  - Maternal exposure during pregnancy [Unknown]
  - Umbilical hernia [Unknown]
  - Infantile colic [Unknown]
  - Premature baby [Unknown]
